FAERS Safety Report 5964276-1 (Version None)
Quarter: 2008Q4

REPORT INFORMATION
  Report Type: 
  Country: None (occurrence: None)
  Receive Date: 20081124
  Receipt Date: 20081120
  Transmission Date: 20090506
  Serious: Yes (Other)
  Sender: FDA-Public Use
  Company Number: US-PFIZER INC-2008098638

PATIENT
  Sex: Male
  Weight: 81.6 kg

DRUGS (3)
  1. GEODON [Suspect]
     Indication: BIPOLAR DISORDER
  2. CYMBALTA [Concomitant]
  3. REBIF [Concomitant]

REACTIONS (1)
  - PHARYNGEAL OEDEMA [None]
